FAERS Safety Report 21654461 (Version 1)
Quarter: 2022Q4

REPORT INFORMATION
  Report Type: Spontaneous
  Country: None (occurrence: CN)
  Receive Date: 20221129
  Receipt Date: 20221129
  Transmission Date: 20230113
  Serious: Yes (Other)
  Sender: FDA-Public Use
  Company Number: CN-Jiangsu Hengrui Medicine Co., Ltd.-2135328

PATIENT

DRUGS (10)
  1. CISATRACURIUM BESYLATE [Suspect]
     Active Substance: CISATRACURIUM BESYLATE
     Indication: Induction of anaesthesia
  2. ETOMIDATE [Suspect]
     Active Substance: ETOMIDATE
  3. DEXMEDETOMIDINE [Suspect]
     Active Substance: DEXMEDETOMIDINE
  4. PROPOFOL [Suspect]
     Active Substance: PROPOFOL
  5. SUFENTANIL CITRATE [Suspect]
     Active Substance: SUFENTANIL CITRATE
  6. REMIFENTANIL HYDROCHLORIDE [Suspect]
     Active Substance: REMIFENTANIL HYDROCHLORIDE
  7. DEZOCINE [Suspect]
     Active Substance: DEZOCINE
     Route: 042
  8. FLURBIPROFEN AXETIL [Suspect]
     Active Substance: FLURBIPROFEN AXETIL
     Route: 042
  9. LACTATED RINGERS SOLUTION [Suspect]
     Active Substance: CALCIUM CHLORIDE\POTASSIUM CHLORIDE\SODIUM CHLORIDE\SODIUM LACTATE
  10. GRANISETRON HYDROCHLORIDE [Suspect]
     Active Substance: GRANISETRON HYDROCHLORIDE

REACTIONS (1)
  - Respiratory depression [Unknown]
